FAERS Safety Report 7544992-0 (Version None)
Quarter: 2011Q2

REPORT INFORMATION
  Report Type: 
  Country: None (occurrence: None)
  Receive Date: 20110614
  Receipt Date: 20110601
  Transmission Date: 20111010
  Serious: Yes (Other)
  Sender: FDA-Public Use
  Company Number: US-BAYER-200829300NA

PATIENT
  Age: 45 Year
  Sex: Male

DRUGS (20)
  1. HEART MEDICATION (NOS) [Concomitant]
  2. MULTIHANCE [Suspect]
     Indication: PRODUCT USED FOR UNKNOWN INDICATION
  3. PROHANCE [Suspect]
     Indication: PRODUCT USED FOR UNKNOWN INDICATION
  4. RESTORIL [Concomitant]
  5. IMMUNOSUPPRESSIVE AGENTS [Concomitant]
  6. PLAVIX [Concomitant]
  7. COUMADIN [Concomitant]
  8. MAGNEVIST [Suspect]
     Indication: ANGIOGRAM
     Dates: start: 20070205, end: 20070205
  9. NEORAL [Concomitant]
  10. MULTI-VITAMIN [Concomitant]
  11. PREDNISONE [Concomitant]
  12. DIGOXIN [Concomitant]
  13. OMNISCAN [Suspect]
     Indication: PRODUCT USED FOR UNKNOWN INDICATION
  14. IRON SUPPLEMENT [Concomitant]
  15. LIPITOR [Concomitant]
  16. MAGNEVIST [Suspect]
     Indication: NUCLEAR MAGNETIC RESONANCE IMAGING
  17. HYDROCODONE BITARTRATE [Concomitant]
  18. EPOGEN [Concomitant]
     Dates: start: 19900101, end: 19990101
  19. PROCARDIA [Concomitant]
  20. OPTIMARK [Suspect]
     Indication: PRODUCT USED FOR UNKNOWN INDICATION

REACTIONS (13)
  - OEDEMA PERIPHERAL [None]
  - DISCOMFORT [None]
  - INJURY [None]
  - PAIN [None]
  - GENERAL PHYSICAL HEALTH DETERIORATION [None]
  - EMOTIONAL DISTRESS [None]
  - BACK PAIN [None]
  - MAJOR DEPRESSION [None]
  - MOBILITY DECREASED [None]
  - RASH [None]
  - PAIN IN EXTREMITY [None]
  - NEPHROGENIC SYSTEMIC FIBROSIS [None]
  - ANXIETY [None]
